FAERS Safety Report 5237385-2 (Version None)
Quarter: 2007Q1

REPORT INFORMATION
  Report Type: 
  Country: None (occurrence: None)
  Receive Date: 20070213
  Receipt Date: 20070129
  Transmission Date: 20070707
  Serious: Yes (Other)
  Sender: FDA-Public Use
  Company Number: US-SHR-US-2006-027230

PATIENT
  Age: 36 Year
  Sex: Female
  Weight: 105.22 kg

DRUGS (8)
  1. BETASERON [Suspect]
     Dosage: 2.4 MIU, EVERY 2D
     Route: 058
  2. BETASERON [Suspect]
     Dosage: 8 MIU, EVERY 2D
     Route: 058
     Dates: start: 20060714
  3. ADIPEX-P [Concomitant]
     Dosage: 37.5 MG, UNK
  4. KLONOPIN [Concomitant]
     Dosage: .5 MG, UNK
  5. BACLOFEN [Concomitant]
     Dosage: 10 MG, UNK
  6. NEURONTIN [Concomitant]
     Indication: NEUROPATHY
     Dosage: 1600 UNK, 1X/DAY
     Route: 048
     Dates: start: 20060201
  7. DARVON [Concomitant]
     Indication: PAIN
     Dosage: 65 MG, UNK
     Route: 048
     Dates: start: 20061101
  8. DARVOCET [Concomitant]
     Indication: PAIN
     Dosage: 100/650
     Route: 048
     Dates: start: 20060301

REACTIONS (13)
  - CHILLS [None]
  - ERYTHEMA [None]
  - FATIGUE [None]
  - HEPATIC ENZYME INCREASED [None]
  - HYPERHIDROSIS [None]
  - HYPOAESTHESIA [None]
  - HYPOAESTHESIA FACIAL [None]
  - INSOMNIA [None]
  - MULTIPLE SCLEROSIS [None]
  - NAUSEA [None]
  - PNEUMONIA [None]
  - PYREXIA [None]
  - SARCOIDOSIS [None]
